FAERS Safety Report 9379216 (Version 2)
Quarter: 2013Q3

REPORT INFORMATION
  Report Type: Spontaneous
  Country: JP (occurrence: JP)
  Receive Date: 20130702
  Receipt Date: 20130708
  Transmission Date: 20140515
  Serious: Yes (Life-Threatening, Hospitalization)
  Sender: FDA-Public Use
  Company Number: JP-ASTELLAS-2013US006741

PATIENT
  Age: 80 Year
  Sex: Female

DRUGS (5)
  1. TARCEVA [Suspect]
     Indication: LUNG ADENOCARCINOMA
     Dosage: 100 MG, UID/QD
     Route: 048
     Dates: start: 20130313, end: 20130425
  2. EXFORGE [Concomitant]
     Indication: HYPERTENSION
     Dosage: 1 DF, UID/QD
     Route: 048
  3. GASTER D [Concomitant]
     Indication: PROPHYLAXIS
     Dosage: 20 MG, BID
     Route: 048
     Dates: start: 20130429
  4. LOXOPROFEN [Concomitant]
     Indication: LUNG ADENOCARCINOMA
     Dosage: 180 MG, TID
     Route: 048
     Dates: start: 20121205, end: 20130426
  5. MUCOSOLVAN [Concomitant]
     Indication: LUNG ADENOCARCINOMA
     Dosage: 45 MG, TID
     Route: 048
     Dates: start: 20130411, end: 20130528

REACTIONS (7)
  - Incorrect dose administered [Unknown]
  - Interstitial lung disease [Recovering/Resolving]
  - Oedema peripheral [Recovering/Resolving]
  - Hypoalbuminaemia [Recovering/Resolving]
  - Hyperkalaemia [Unknown]
  - Oral candidiasis [Recovering/Resolving]
  - Renal disorder [Recovering/Resolving]
